FAERS Safety Report 14164205 (Version 2)
Quarter: 2017Q4

REPORT INFORMATION
  Report Type: Spontaneous
  Country: US (occurrence: US)
  Receive Date: 20171107
  Receipt Date: 20171116
  Transmission Date: 20180321
  Serious: Yes (Hospitalization)
  Sender: FDA-Public Use
  Company Number: US-AUROBINDO-AUR-APL-2017-43221

PATIENT
  Age: 2 Year
  Sex: Female

DRUGS (1)
  1. ARIPIPRAZOLE. [Suspect]
     Active Substance: ARIPIPRAZOLE
     Indication: PRODUCT USED FOR UNKNOWN INDICATION
     Dosage: UNK
     Route: 065

REACTIONS (13)
  - Slow response to stimuli [Recovered/Resolved]
  - Nuchal rigidity [Recovered/Resolved]
  - Urine output decreased [Recovered/Resolved]
  - Asthenia [Recovered/Resolved]
  - Toxicity to various agents [Recovered/Resolved]
  - Irritability [Recovered/Resolved]
  - Hypertonia [Recovered/Resolved]
  - Aggression [Recovered/Resolved]
  - Hypophagia [Recovered/Resolved]
  - Ataxia [Recovered/Resolved]
  - Accidental exposure to product [Recovered/Resolved]
  - Mental status changes [Recovered/Resolved]
  - Somnolence [Recovered/Resolved]
